FAERS Safety Report 5678952-1 (Version None)
Quarter: 2008Q1

REPORT INFORMATION
  Report Type: 
  Country: None (occurrence: None)
  Receive Date: 20080325
  Receipt Date: 20080313
  Transmission Date: 20080703
  Serious: Yes (Other)
  Sender: FDA-Public Use
  Company Number: US-BAYER-200810851BCC

PATIENT
  Age: 63 Year
  Sex: Male
  Weight: 86 kg

DRUGS (6)
  1. ASPIRIN [Suspect]
     Indication: DRUG USE FOR UNKNOWN INDICATION
     Route: 048
  2. VIAGRA [Suspect]
     Indication: ERECTILE DYSFUNCTION
     Dosage: UNIT DOSE: 50 MG
     Route: 048
     Dates: start: 20050101
  3. PLAVIX [Suspect]
     Indication: STENT PLACEMENT
     Route: 048
     Dates: start: 20060101
  4. TENORMIN [Concomitant]
  5. SPIRONOLACTONE [Concomitant]
  6. NITRATES [Concomitant]

REACTIONS (9)
  - BLOOD CREATININE INCREASED [None]
  - BURNING SENSATION [None]
  - DIABETES MELLITUS [None]
  - FLUSHING [None]
  - GASTRIC ULCER [None]
  - LABORATORY TEST ABNORMAL [None]
  - STENT PLACEMENT [None]
  - STOMACH DISCOMFORT [None]
  - WEIGHT INCREASED [None]
